FAERS Safety Report 8761198 (Version 2)
Quarter: 2013Q4

REPORT INFORMATION
  Report Type: Spontaneous
  Country: ES (occurrence: ES)
  Receive Date: 20120830
  Receipt Date: 20131031
  Transmission Date: 20140711
  Serious: Yes (Other)
  Sender: FDA-Public Use
  Company Number: ES-009507513-1208ESP010785

PATIENT
  Age: 68 Year
  Sex: Female

DRUGS (3)
  1. NASONEX [Suspect]
     Indication: THROAT IRRITATION
     Dosage: 1 DF, QPM
     Route: 045
     Dates: start: 201208
  2. TRANXILIUM [Concomitant]
     Indication: DEPRESSION
  3. PROZAC [Concomitant]
     Indication: DEPRESSION

REACTIONS (6)
  - Dizziness [Recovering/Resolving]
  - Vomiting [Recovering/Resolving]
  - Loss of consciousness [Recovered/Resolved]
  - Headache [Recovering/Resolving]
  - Feeling abnormal [Recovering/Resolving]
  - Viral infection [Recovering/Resolving]
